FAERS Safety Report 18649618 (Version 3)
Quarter: 2021Q1

REPORT INFORMATION
  Report Type: Spontaneous
  Country: US (occurrence: US)
  Receive Date: 20201222
  Receipt Date: 20210210
  Transmission Date: 20210419
  Serious: Yes (Death, Hospitalization, Other)
  Sender: FDA-Public Use
  Company Number: US-INCYTE CORPORATION-2020IN012718

PATIENT

DRUGS (10)
  1. JAKAFI [Suspect]
     Active Substance: RUXOLITINIB
     Indication: LYMPHOMA
     Dosage: 10 MILLIGRAM, BID
     Route: 048
     Dates: start: 20200623
  2. PROMETHAZINE HCL [Concomitant]
     Active Substance: PROMETHAZINE HYDROCHLORIDE
     Indication: NAUSEA
     Dosage: 204MLS/HR, Q6H PRN
     Route: 042
  3. ARTIFICIAL TEARS [Concomitant]
     Active Substance: GLYCERIN\HYPROMELLOSES\POLYETHYLENE GLYCOL 400
     Indication: DRY EYE
     Dosage: 0 ML, PRN
     Route: 047
  4. LORAZEPAM. [Concomitant]
     Active Substance: LORAZEPAM
     Indication: ANXIETY
     Dosage: 1?2 MG, Q1H PRN
     Route: 042
     Dates: end: 20201211
  5. SALIVA SUBSTITUTE [Concomitant]
     Active Substance: CARBOXYMETHYLCELLULOSE SODIUM\DEVICE\SORBINICATE
     Indication: DRY MOUTH
     Dosage: 0 ML, PRN
     Route: 048
  6. FENTANYL CITRATE. [Concomitant]
     Active Substance: FENTANYL CITRATE
     Indication: PAIN
     Dosage: 25?50 MCG, Q2H PRN
     Route: 042
     Dates: end: 20201211
  7. GLYCOPYRROLATE [GLYCOPYRRONIUM BROMIDE] [Concomitant]
     Active Substance: GLYCOPYRROLATE
     Indication: SECRETION DISCHARGE
     Dosage: 0.1MG, Q1H PRN
     Route: 042
  8. ATROPINE SULFATE. [Concomitant]
     Active Substance: ATROPINE SULFATE
     Indication: SECRETION DISCHARGE
     Dosage: 0 ML, Q4H PRN
     Route: 060
  9. FENTANYL CITRATE. [Concomitant]
     Active Substance: FENTANYL CITRATE
     Dosage: 0.2 ML/HR
     Route: 042
  10. FENTANYL CITRATE. [Concomitant]
     Active Substance: FENTANYL CITRATE
     Dosage: 200 MCG/HR, 4 ML/HR
     Route: 042
     Dates: end: 20201211

REACTIONS (12)
  - COVID-19 pneumonia [Unknown]
  - Multiple organ dysfunction syndrome [Unknown]
  - COVID-19 [Unknown]
  - Respiratory failure [Fatal]
  - Metabolic encephalopathy [Unknown]
  - Cardiac arrest [Fatal]
  - Acute kidney injury [Unknown]
  - Multiple sclerosis [Unknown]
  - Off label use [Unknown]
  - Atrial fibrillation [Unknown]
  - Terminal state [Unknown]
  - Oxygen saturation decreased [Unknown]

NARRATIVE: CASE EVENT DATE: 20200623
